FAERS Safety Report 15388820 (Version 2)
Quarter: 2019Q1

REPORT INFORMATION
  Report Type: Spontaneous
  Country: US (occurrence: US)
  Receive Date: 20180916
  Receipt Date: 20190225
  Transmission Date: 20190417
  Serious: No
  Sender: FDA-Public Use
  Company Number: US-JNJFOC-20180841853

PATIENT
  Age: 18 Year
  Sex: Male

DRUGS (1)
  1. REMICADE [Suspect]
     Active Substance: INFLIXIMAB
     Indication: CROHN^S DISEASE
     Route: 042

REACTIONS (4)
  - Product dose omission [Unknown]
  - Off label use [Unknown]
  - Product use issue [Unknown]
  - Product complaint [Unknown]

NARRATIVE: CASE EVENT DATE: 20180829
